FAERS Safety Report 6570235-0 (Version None)
Quarter: 2010Q2

REPORT INFORMATION
  Report Type: 
  Country: None (occurrence: None)
  Receive Date: 20100204
  Receipt Date: 20100125
  Transmission Date: 20101027
  Serious: Yes (Death, Hospitalization)
  Sender: FDA-Public Use
  Company Number: US-JNJFOC-20080106538

PATIENT
  Age: 9 Month
  Sex: Male

DRUGS (2)
  1. CONCENTRATED TYLENOL INFANT DROPS [Suspect]
  2. CONCENTRATED TYLENOL INFANT DROPS [Suspect]
     Indication: RESPIRATORY TRACT INFECTION
     Dosage: 2 DAYS

REACTIONS (2)
  - HEPATIC FAILURE [None]
  - OVERDOSE [None]
